FAERS Safety Report 23971719 (Version 1)
Quarter: 2024Q2

REPORT INFORMATION
  Report Type: Spontaneous
  Country: US (occurrence: None)
  Receive Date: 20240612
  Receipt Date: 20240612
  Transmission Date: 20240716
  Serious: Yes (Life-Threatening, Hospitalization, Other)
  Sender: FDA-Public Use
  Company Number: None

PATIENT
  Age: 64 Year
  Sex: Female
  Weight: 87.75 kg

DRUGS (1)
  1. OZEMPIC [Suspect]
     Active Substance: SEMAGLUTIDE
     Indication: Type 2 diabetes mellitus
     Dates: start: 20240112, end: 20240209

REACTIONS (7)
  - Dyspepsia [None]
  - Illness [None]
  - Vomiting [None]
  - Nonspecific reaction [None]
  - Large intestine perforation [None]
  - Large intestinal obstruction [None]
  - Product label issue [None]

NARRATIVE: CASE EVENT DATE: 20240212
